FAERS Safety Report 10179679 (Version 1)
Quarter: 2014Q2

REPORT INFORMATION
  Report Type: Spontaneous
  Country: US (occurrence: US)
  Receive Date: 20140519
  Receipt Date: 20140519
  Transmission Date: 20141212
  Serious: No
  Sender: FDA-Public Use
  Company Number: US-PFIZER INC-2014135730

PATIENT
  Age: 59 Year
  Sex: Female

DRUGS (2)
  1. CELECOXIB [Suspect]
     Indication: BACK PAIN
     Dosage: UNK
     Dates: start: 2013
  2. CELECOXIB [Suspect]
     Dosage: UNK

REACTIONS (3)
  - Drug ineffective [Unknown]
  - Pain [Unknown]
  - Osteoarthritis [Unknown]
